FAERS Safety Report 5649362-8 (Version None)
Quarter: 2008Q1

REPORT INFORMATION
  Report Type: 
  Country: None (occurrence: None)
  Receive Date: 20080131
  Receipt Date: 20071114
  Transmission Date: 20080703
  Serious: Yes (Hospitalization)
  Sender: FDA-Public Use
  Company Number: US200706003734

PATIENT
  Age: 58 Year
  Sex: Female
  Weight: 127 kg

DRUGS (10)
  1. BYETTA [Suspect]
     Indication: TYPE 2 DIABETES MELLITUS
     Dosage: 5 UG, SUBCUTANEOUS
     Route: 058
     Dates: start: 20060101, end: 20060101
  2. BYETTA [Suspect]
     Dosage: 10 UG, 2/D, SUBCUTANEOUS
     Route: 058
     Dates: start: 20060101
  3. BYETTA [Suspect]
     Dosage: 10 UG, SUBCUTANEOUS
     Route: 058
     Dates: start: 20060101
  4. BYETTA [Suspect]
     Dosage: 10 UG, SUBCUTANEOUS
     Route: 058
     Dates: start: 20060101
  5. METFORMIN HCL [Concomitant]
  6. AVANDAMET [Concomitant]
  7. ASPIRIN [Concomitant]
  8. AVALIDE (HYDROCHLORIDE, IRBESARTAN) [Concomitant]
  9. PRECOSE [Concomitant]
  10. SYNTHROID [Concomitant]

REACTIONS (2)
  - DIZZINESS [None]
  - INJECTION SITE HAEMORRHAGE [None]
